FAERS Safety Report 8817172 (Version 1)
Quarter: 2012Q4

REPORT INFORMATION
  Report Type: Spontaneous
  Country: US (occurrence: None)
  Receive Date: 20121003
  Receipt Date: 20121003
  Transmission Date: 20130627
  Serious: No
  Sender: FDA-Public Use
  Company Number: None

PATIENT
  Age: 46 Year
  Sex: Female
  Weight: 84.82 kg

DRUGS (1)
  1. ESCITALOPRAM [Suspect]
     Dosage: 20 mg, 1 QD PO
     Route: 048
     Dates: start: 20120730, end: 20121001

REACTIONS (3)
  - Stress [None]
  - Anxiety [None]
  - Drug ineffective [None]
